FAERS Safety Report 21340425 (Version 1)
Quarter: 2022Q3

REPORT INFORMATION
  Report Type: Other
  Country: US (occurrence: None)
  Receive Date: 20220916
  Receipt Date: 20220916
  Transmission Date: 20221027
  Serious: Yes (Other)
  Sender: FDA-Public Use
  Company Number: US-ROCHE-3178377

PATIENT
  Sex: Female

DRUGS (4)
  1. XELODA [Suspect]
     Active Substance: CAPECITABINE
     Indication: Breast cancer metastatic
     Dosage: TAKE 4 TABLET(S) BY MOUTH TWICE A DAY WITH FOOD 2 WEEK(S) ON, 1 WEEK(S) OFF
     Route: 048
  2. XELODA [Suspect]
     Active Substance: CAPECITABINE
     Indication: Nausea
  3. XELODA [Suspect]
     Active Substance: CAPECITABINE
     Indication: Immunosuppression
  4. XELODA [Suspect]
     Active Substance: CAPECITABINE
     Indication: Vomiting

REACTIONS (1)
  - Bone cancer [Unknown]
